FAERS Safety Report 6105610-1 (Version None)
Quarter: 2009Q1

REPORT INFORMATION
  Report Type: 
  Country: None (occurrence: None)
  Receive Date: 20090304
  Receipt Date: 20090304
  Transmission Date: 20090719
  Serious: No
  Sender: FDA-Public Use
  Company Number: None

PATIENT
  Age: 40 Year
  Sex: Female
  Weight: 59.8748 kg

DRUGS (2)
  1. AMBIEN [Suspect]
     Indication: INSOMNIA
     Dosage: 1 TABLET AT BEDTIME PO
     Route: 048
     Dates: start: 20090216, end: 20090221
  2. AMBIEN [Suspect]
     Indication: POOR QUALITY SLEEP
     Dosage: 1 TABLET AT BEDTIME PO
     Route: 048
     Dates: start: 20090216, end: 20090221

REACTIONS (7)
  - CARDIAC DISORDER [None]
  - DRY THROAT [None]
  - DYSPHAGIA [None]
  - FEELING ABNORMAL [None]
  - HEAD DISCOMFORT [None]
  - HEADACHE [None]
  - MIDDLE INSOMNIA [None]
